FAERS Safety Report 5828125-4 (Version None)
Quarter: 2008Q3

REPORT INFORMATION
  Report Type: 
  Country: None (occurrence: None)
  Receive Date: 20080729
  Receipt Date: 20080711
  Transmission Date: 20090109
  Serious: Yes (Other)
  Sender: FDA-Public Use
  Company Number: 6043987

PATIENT
  Age: 68 Year
  Sex: Male

DRUGS (5)
  1. CONCOR COR (BISOPROLOL FUMARATE) [Suspect]
     Indication: HYPERTENSION
     Dosage: 2.5 MG (2.5 MG, 1 IN 1 D); ORAL
     Route: 048
     Dates: start: 20070101, end: 20080501
  2. CONCOR COR (BISOPROLOL FUMARATE) [Suspect]
     Indication: TACHYCARDIA
     Dosage: 2.5 MG (2.5 MG, 1 IN 1 D); ORAL
     Route: 048
     Dates: start: 20070101, end: 20080501
  3. CO APROVEL (HYDROCHLOROTHIAZIDE, IRBESARTAN) [Concomitant]
  4. NEURONTIN [Concomitant]
  5. LYRICA [Concomitant]

REACTIONS (5)
  - ALCOHOL INTOLERANCE [None]
  - CONDITION AGGRAVATED [None]
  - MYALGIA [None]
  - PAIN [None]
  - POLYNEUROPATHY [None]
